FAERS Safety Report 17174906 (Version 1)
Quarter: 2019Q4

REPORT INFORMATION
  Report Type: Spontaneous
  Country: US (occurrence: US)
  Receive Date: 20191218
  Receipt Date: 20191218
  Transmission Date: 20200122
  Serious: Yes (Disabling)
  Sender: FDA-Public Use
  Company Number: None

PATIENT
  Age: 29 Year
  Sex: Female
  Weight: 50.4 kg

DRUGS (3)
  1. RESTASIS [Suspect]
     Active Substance: CYCLOSPORINE
  2. XIIDRA [Suspect]
     Active Substance: LIFITEGRAST
  3. LASIK [Suspect]
     Active Substance: FUROSEMIDE\POTASSIUM CHLORIDE

REACTIONS (2)
  - Eye disorder [None]
  - Dry eye [None]

NARRATIVE: CASE EVENT DATE: 20170927
